FAERS Safety Report 5607711-0 (Version None)
Quarter: 2008Q1

REPORT INFORMATION
  Report Type: 
  Country: None (occurrence: None)
  Receive Date: 20080125
  Receipt Date: 20080115
  Transmission Date: 20080703
  Serious: Yes (Other)
  Sender: FDA-Public Use
  Company Number: GXKR2007GB09479

PATIENT
  Sex: Male

DRUGS (2)
  1. SIMVASTATIN [Suspect]
     Indication: HYPERCHOLESTEROLAEMIA
     Dosage: 40 MG, ORAL
     Route: 048
     Dates: start: 20070806, end: 20071002
  2. SOTALOL HCL [Concomitant]

REACTIONS (1)
  - ERECTILE DYSFUNCTION [None]
